FAERS Safety Report 11526119 (Version 1)
Quarter: 2015Q3

REPORT INFORMATION
  Report Type: Spontaneous
  Country: US (occurrence: US)
  Receive Date: 20150918
  Receipt Date: 20150918
  Transmission Date: 20151125
  Serious: Yes (Other)
  Sender: FDA-Public Use
  Company Number: US-TAKEDA-TPA2012A08356

PATIENT

DRUGS (7)
  1. ACTOS [Suspect]
     Active Substance: PIOGLITAZONE HYDROCHLORIDE
     Dates: start: 20090508, end: 20111031
  2. PRANDIN [Concomitant]
     Active Substance: REPAGLINIDE
     Dates: start: 20080630, end: 20100517
  3. ACTOS [Suspect]
     Active Substance: PIOGLITAZONE HYDROCHLORIDE
     Indication: TYPE 2 DIABETES MELLITUS
     Dates: start: 20090213, end: 20090423
  4. JANUVIA [Concomitant]
     Active Substance: SITAGLIPTIN PHOSPHATE
     Dates: start: 20080125, end: 20100820
  5. METFORMIN [Concomitant]
     Active Substance: METFORMIN HYDROCHLORIDE
     Dates: start: 20080630, end: 20120405
  6. AVANDIA [Concomitant]
     Active Substance: ROSIGLITAZONE MALEATE
     Dates: start: 20080325
  7. BYETTA [Concomitant]
     Active Substance: EXENATIDE
     Dates: start: 20100930, end: 20120319

REACTIONS (1)
  - Bladder cancer [Unknown]

NARRATIVE: CASE EVENT DATE: 201202
